FAERS Safety Report 20526056 (Version 1)
Quarter: 2022Q1

REPORT INFORMATION
  Report Type: Spontaneous
  Country: GB (occurrence: None)
  Receive Date: 20220228
  Receipt Date: 20220228
  Transmission Date: 20220423
  Serious: Yes (Life-Threatening, Hospitalization)
  Sender: FDA-Public Use
  Company Number: 2022A084939

PATIENT
  Age: 54 Year
  Sex: Female
  Weight: 113.2 kg

DRUGS (5)
  1. DAPAGLIFLOZIN [Suspect]
     Active Substance: DAPAGLIFLOZIN
     Dosage: STOP DURING EP OF SICKNESS/DIARRHOEA OR SEVERE INFECTIONS AND CONTACT SURG FOR ADVICE ON RESTART
     Route: 048
     Dates: start: 20220210, end: 20220218
  2. MODERNA COVID-19 VACCINE [Concomitant]
     Active Substance: ELASOMERAN
     Indication: COVID-19 immunisation
     Dosage: 0.25
     Route: 030
     Dates: start: 20211210, end: 20211210
  3. ATORVASTATIN [Concomitant]
     Active Substance: ATORVASTATIN
     Dosage: 20
     Route: 065
  4. GLICLAZIDE [Concomitant]
     Active Substance: GLICLAZIDE
     Dosage: 80
     Route: 065
  5. METFORMIN [Concomitant]
     Active Substance: METFORMIN HYDROCHLORIDE
     Dosage: IN DIVIDED DOSES
     Route: 065

REACTIONS (4)
  - Necrotising fasciitis [Unknown]
  - Vulval abscess [Unknown]
  - Groin abscess [Unknown]
  - Abscess [Unknown]

NARRATIVE: CASE EVENT DATE: 20220114
